FAERS Safety Report 7270971-7 (Version None)
Quarter: 2011Q1

REPORT INFORMATION
  Report Type: 
  Country: None (occurrence: None)
  Receive Date: 20110202
  Receipt Date: 20110131
  Transmission Date: 20110831
  Serious: No
  Sender: FDA-Public Use
  Company Number: BR-ABBOTT-11P-020-0701367-00

PATIENT
  Sex: Female
  Weight: 65 kg

DRUGS (1)
  1. HUMIRA [Suspect]
     Indication: CROHN'S DISEASE

REACTIONS (6)
  - NASAL CONGESTION [None]
  - APHONIA [None]
  - VIRAL INFECTION [None]
  - NASOPHARYNGITIS [None]
  - DYSPHONIA [None]
  - COUGH [None]
